FAERS Safety Report 25068240 (Version 1)
Quarter: 2025Q1

REPORT INFORMATION
  Report Type: Spontaneous
  Country: ES (occurrence: ES)
  Receive Date: 20250312
  Receipt Date: 20250312
  Transmission Date: 20250409
  Serious: Yes (Death)
  Sender: PFIZER
  Company Number: None

PATIENT
  Age: 87 Year
  Sex: Male
  Weight: 86 kg

DRUGS (1)
  1. TAFAMIDIS [Suspect]
     Active Substance: TAFAMIDIS
     Indication: Cardiac amyloidosis
     Dosage: 61 MG, 1X/DAY
     Route: 048
     Dates: start: 20250220, end: 20250302

REACTIONS (1)
  - Upper gastrointestinal haemorrhage [Fatal]

NARRATIVE: CASE EVENT DATE: 20250302
